FAERS Safety Report 9678614 (Version 6)
Quarter: 2014Q1

REPORT INFORMATION
  Report Type: Report from Study
  Country: US (occurrence: US)
  Receive Date: 20131108
  Receipt Date: 20140310
  Transmission Date: 20141002
  Serious: Yes (Hospitalization, Other)
  Sender: FDA-Public Use
  Company Number: US-JNJFOC-20130914812

PATIENT
  Sex: Female
  Weight: 62.6 kg

DRUGS (30)
  1. REMICADE [Suspect]
     Indication: CROHN^S DISEASE
     Route: 042
     Dates: start: 20130430
  2. REMICADE [Suspect]
     Indication: CROHN^S DISEASE
     Route: 042
     Dates: start: 20130502
  3. REMICADE [Suspect]
     Indication: CROHN^S DISEASE
     Route: 042
     Dates: start: 20130512
  4. REMICADE [Suspect]
     Indication: CROHN^S DISEASE
     Dosage: ALSO REPORTED AS STARTED ON 14-JUN-2013 IN PREVIOUS VERSION
     Route: 042
     Dates: start: 20130611
  5. REMICADE [Suspect]
     Indication: CROHN^S DISEASE
     Route: 042
     Dates: end: 20131001
  6. REMICADE [Suspect]
     Indication: CROHN^S DISEASE
     Dosage: START DATE ALSO REPORTED AS 06-AUG-2013
     Route: 042
     Dates: start: 20130802, end: 20130802
  7. ENTOCORT [Concomitant]
     Indication: CROHN^S DISEASE
     Dosage: 3 CAPSULE OF 3 MG IN THE MORNING.
     Route: 048
     Dates: start: 20131113
  8. ENTOCORT [Concomitant]
     Indication: CROHN^S DISEASE
     Dosage: 1 CAPSULE OF 3 MG.
     Route: 048
     Dates: start: 20130430
  9. ENTOCORT [Concomitant]
     Indication: CROHN^S DISEASE
     Dosage: 1 CAPSULE OF 3 MG.
     Route: 048
     Dates: start: 20130430
  10. ENTOCORT [Concomitant]
     Indication: CROHN^S DISEASE
     Dosage: 3 CAPSULES OF 3 MG.
     Route: 048
     Dates: start: 20130402
  11. ENTOCORT [Concomitant]
     Indication: CROHN^S DISEASE
     Dosage: 2 CAPSULE OF 3 MG IN THE MORNING.
     Route: 048
     Dates: start: 20140103
  12. LEVSIN [Concomitant]
     Indication: ABDOMINAL PAIN
     Dosage: EVERY 4 HOURS AS NEEDED
     Route: 060
  13. MAGNESIUM [Concomitant]
     Indication: SLEEP DISORDER
     Dosage: AT NIGHT
     Route: 048
  14. MAGNESIUM [Concomitant]
     Indication: SLEEP DISORDER
     Route: 048
  15. CALCIUM CITRATE [Concomitant]
     Indication: SLEEP DISORDER
     Route: 065
  16. GLYCINE [Concomitant]
     Indication: SLEEP DISORDER
     Route: 065
  17. GLYCINE [Concomitant]
     Indication: SLEEP DISORDER
     Route: 065
  18. MULTIVITAMINS [Concomitant]
     Route: 048
     Dates: start: 201307
  19. CENTRUM SILVER [Concomitant]
     Route: 065
  20. IRON [Concomitant]
     Dosage: 325 (65 FE)
     Route: 048
  21. VITAMIN B12 [Concomitant]
     Route: 065
  22. CALCIUM+ D. [Concomitant]
     Indication: OSTEOPOROSIS
     Route: 065
  23. ACETAMINOPHEN [Concomitant]
     Indication: PAIN
     Dosage: PRN
     Route: 065
  24. PEPCID [Concomitant]
     Indication: GASTROOESOPHAGEAL REFLUX DISEASE
     Route: 048
  25. PEPCID [Concomitant]
     Indication: GASTROOESOPHAGEAL REFLUX DISEASE
     Route: 048
  26. CYANOCOBALAMIN [Concomitant]
     Route: 060
     Dates: start: 20110223
  27. TUMS [Concomitant]
     Route: 048
  28. CALCIUM [Concomitant]
     Dosage: 600 (1000) SPECIFIC DOSE UNKNOWN
     Route: 048
  29. PREDNISONE [Concomitant]
     Route: 048
     Dates: start: 20130430
  30. PHENERGAN [Concomitant]
     Route: 048
     Dates: start: 20130430

REACTIONS (3)
  - Lung adenocarcinoma [Recovering/Resolving]
  - Small intestinal obstruction [Not Recovered/Not Resolved]
  - Crohn^s disease [Recovering/Resolving]
